FAERS Safety Report 4875440-7 (Version None)
Quarter: 2006Q1

REPORT INFORMATION
  Report Type: 
  Country: None (occurrence: None)
  Receive Date: 20060105
  Receipt Date: 20051220
  Transmission Date: 20060701
  Serious: Yes (Other)
  Sender: FDA-Public Use
  Company Number: 2006000384

PATIENT
  Sex: 0

DRUGS (1)
  1. CELEBREX [Suspect]
     Indication: ARTHRITIS
     Dates: start: 20000101

REACTIONS (4)
  - BRAIN DAMAGE [None]
  - DIFFICULTY IN WALKING [None]
  - FALL [None]
  - WALKING AID USER [None]
